FAERS Safety Report 6610474-3 (Version None)
Quarter: 2010Q1

REPORT INFORMATION
  Report Type: 
  Country: None (occurrence: None)
  Receive Date: 20100302
  Receipt Date: 20100219
  Transmission Date: 20100710
  Serious: Yes (Hospitalization)
  Sender: FDA-Public Use
  Company Number: GB-ABBOTT-09P-167-0614957-00

PATIENT
  Age: 50 Year
  Sex: Female

DRUGS (5)
  1. HUMIRA [Suspect]
     Indication: PSORIASIS
     Dates: start: 20091001, end: 20091201
  2. OESTROGEN [Concomitant]
     Indication: DRUG USE FOR UNKNOWN INDICATION
  3. ATENOLOL [Concomitant]
     Indication: DRUG USE FOR UNKNOWN INDICATION
  4. METOCLOPRAMIDE HYDROCHLORIDE [Concomitant]
     Indication: DRUG USE FOR UNKNOWN INDICATION
  5. LETRIZINE [Concomitant]
     Indication: PSORIASIS
     Route: 048
     Dates: start: 20090201, end: 20091201

REACTIONS (5)
  - AMNESIA [None]
  - ARTHRITIS [None]
  - BRAIN OEDEMA [None]
  - DEMYELINATION [None]
  - DISORIENTATION [None]
